FAERS Safety Report 5542396-3 (Version None)
Quarter: 2007Q4

REPORT INFORMATION
  Report Type: 
  Country: None (occurrence: None)
  Receive Date: 20071129
  Receipt Date: 20070606
  Transmission Date: 20080405
  Serious: Yes (Other)
  Sender: FDA-Public Use
  Company Number: US200706001356

PATIENT
  Sex: Male
  Weight: 108.4 kg

DRUGS (4)
  1. ZYPREXA [Suspect]
     Indication: BIPOLAR DISORDER
     Dosage: 10 MG, OTHER : 10 MG EACH EVENING : 10 MG, 2/D
     Dates: start: 20060101, end: 20060901
  2. ZYPREXA [Suspect]
     Indication: BIPOLAR DISORDER
     Dosage: 10 MG, OTHER : 10 MG EACH EVENING : 10 MG, 2/D
     Dates: start: 20060901
  3. ATIVAN [Concomitant]
  4. DEPAKOTE ER [Concomitant]

REACTIONS (7)
  - ACTIVITIES OF DAILY LIVING IMPAIRED [None]
  - FLUID RETENTION [None]
  - HEAD TITUBATION [None]
  - SOMNOLENCE [None]
  - THYROID DISORDER [None]
  - TREMOR [None]
  - WEIGHT INCREASED [None]
